FAERS Safety Report 23967026 (Version 1)
Quarter: 2024Q2

REPORT INFORMATION
  Report Type: Report from Study
  Country: IT (occurrence: IT)
  Receive Date: 20240612
  Receipt Date: 20240612
  Transmission Date: 20240716
  Serious: Yes (Hospitalization)
  Sender: FDA-Public Use
  Company Number: IT-JNJFOC-20240580251

PATIENT
  Age: 80 Year
  Sex: Male

DRUGS (6)
  1. DEXAMETHASONE SODIUM PHOSPHATE [Suspect]
     Active Substance: DEXAMETHASONE PHOSPHATE\DEXAMETHASONE SODIUM PHOSPHATE
     Indication: Plasma cell myeloma
     Dosage: UNK
     Dates: start: 20231227, end: 20240110
  2. DEXAMETHASONE SODIUM PHOSPHATE [Suspect]
     Active Substance: DEXAMETHASONE PHOSPHATE\DEXAMETHASONE SODIUM PHOSPHATE
     Dosage: UNK
     Dates: start: 20240207, end: 202402
  3. BORTEZOMIB [Suspect]
     Active Substance: BORTEZOMIB
     Indication: Plasma cell myeloma
     Dosage: 1 MG/MQ
     Dates: start: 20231227, end: 20240110
  4. BORTEZOMIB [Suspect]
     Active Substance: BORTEZOMIB
     Dosage: 1 MG/MQ
     Dates: start: 20240207, end: 202402
  5. DARATUMUMAB [Suspect]
     Active Substance: DARATUMUMAB
     Indication: Plasma cell myeloma
     Dosage: UNK
     Dates: start: 20231227, end: 20240110
  6. DARATUMUMAB [Suspect]
     Active Substance: DARATUMUMAB
     Dosage: UNK
     Dates: start: 20240207, end: 202402

REACTIONS (1)
  - H1N1 influenza [Recovered/Resolved]

NARRATIVE: CASE EVENT DATE: 20240116
